FAERS Safety Report 9245723 (Version 1)
Quarter: 2013Q1

REPORT INFORMATION
  Report Type: Spontaneous
  Country: US (occurrence: None)
  Receive Date: 20121130
  Receipt Date: 20121130
  Transmission Date: 20140127
  Serious: Yes (Hospitalization)
  Sender: FDA-Public Use
  Company Number: 350389

PATIENT
  Age: 57 Year
  Sex: Female
  Weight: 84.8 kg

DRUGS (1)
  1. NOVOLOG [Suspect]
     Indication: TYPE 2 DIABETES MELLITUS
     Dosage: SLIDING SCALE, SUBCUTANEOUS
     Route: 058
     Dates: start: 20120315, end: 20120415

REACTIONS (4)
  - Hyperglycaemic unconsciousness [None]
  - Pruritus [None]
  - Muscle spasms [None]
  - Diplopia [None]
